FAERS Safety Report 5337597-3 (Version None)
Quarter: 2007Q2

REPORT INFORMATION
  Report Type: 
  Country: None (occurrence: None)
  Receive Date: 20070309
  Receipt Date: 20060720
  Transmission Date: 20071010
  Serious: Yes (Other)
  Sender: FDA-Public Use
  Company Number: US200607003526

PATIENT
  Sex: Female

DRUGS (3)
  1. GEMZAR [Suspect]
     Indication: NON-SMALL CELL LUNG CANCER
     Dates: start: 20060101, end: 20060101
  2. CARBOPLATIN [Concomitant]
  3. AVASTIN [Concomitant]

REACTIONS (1)
  - PULMONARY TOXICITY [None]
